FAERS Safety Report 6818583-0 (Version None)
Quarter: 2010Q3

REPORT INFORMATION
  Report Type: 
  Country: None (occurrence: None)
  Receive Date: 20100706
  Receipt Date: 20081217
  Transmission Date: 20110219
  Serious: No
  Sender: FDA-Public Use
  Company Number: US-PFIZER INC-2008097866

PATIENT
  Sex: Female

DRUGS (2)
  1. ZITHROMAX [Suspect]
     Indication: UVEITIS
     Dosage: UNK
     Route: 048
     Dates: start: 20081017
  2. PREDNISONE [Suspect]
     Indication: TOXOPLASMOSIS
     Dosage: 60 MG, 1X/DAY
     Dates: start: 20081018, end: 20081105

REACTIONS (2)
  - DYSMENORRHOEA [None]
  - MENORRHAGIA [None]
